FAERS Safety Report 12779604 (Version 1)
Quarter: 2016Q3

REPORT INFORMATION
  Report Type: Spontaneous
  Country: US (occurrence: US)
  Receive Date: 20160924
  Receipt Date: 20160924
  Transmission Date: 20161109
  Serious: Yes (Other)
  Sender: FDA-Public Use
  Company Number: None

PATIENT
  Age: 70 Year
  Sex: Female
  Weight: 66.6 kg

DRUGS (1)
  1. HYOSCYAMINE 0.125MG TAB SL VIRTUS PHARMACE [Suspect]
     Active Substance: HYOSCYAMINE
     Indication: IRRITABLE BOWEL SYNDROME
     Dosage: OTHER STRENGTH:;OTHER DOSE:SL;OTHER FREQUENCY:;OTHER ROUTE:
     Route: 060
     Dates: start: 20160909, end: 20160913

REACTIONS (4)
  - Peripheral swelling [None]
  - Fluid retention [None]
  - Product use issue [None]
  - Joint swelling [None]

NARRATIVE: CASE EVENT DATE: 20160912
